FAERS Safety Report 7359944-3 (Version None)
Quarter: 2011Q1

REPORT INFORMATION
  Report Type: 
  Country: None (occurrence: None)
  Receive Date: 20110317
  Receipt Date: 20110310
  Transmission Date: 20110831
  Serious: Yes (Other)
  Sender: FDA-Public Use
  Company Number: US-US-EMD SERONO, INC.-7047150

PATIENT
  Sex: Female

DRUGS (2)
  1. REBIF [Suspect]
     Indication: PRODUCT USED FOR UNKNOWN INDICATION
     Route: 058
     Dates: start: 20110111, end: 20110303
  2. REBIF [Suspect]
     Route: 058
     Dates: start: 20110310

REACTIONS (6)
  - FATIGUE [None]
  - HYPOAESTHESIA [None]
  - CARDIAC MURMUR [None]
  - DIZZINESS [None]
  - ERYTHEMA [None]
  - VOMITING [None]
